FAERS Safety Report 19645641 (Version 1)
Quarter: 2021Q3

REPORT INFORMATION
  Report Type: Spontaneous
  Country: SE (occurrence: SE)
  Receive Date: 20210802
  Receipt Date: 20210802
  Transmission Date: 20211014
  Serious: Yes (Disabling)
  Sender: FDA-Public Use
  Company Number: NVSC2021SE169499

PATIENT
  Age: 59 Year
  Sex: Male
  Weight: 72 kg

DRUGS (3)
  1. TAFINLAR [Suspect]
     Active Substance: DABRAFENIB MESYLATE
     Indication: PALLIATIVE CARE
     Dosage: 150MG (75 MG 1X2)
     Route: 048
     Dates: start: 20201104, end: 20201201
  2. MEKINIST [Suspect]
     Active Substance: TRAMETINIB DIMETHYL SULFOXIDE
     Indication: METASTATIC MALIGNANT MELANOMA
     Dosage: 2 MG, QD 2 MG,QD (2 MG 1X1)
     Route: 048
     Dates: start: 20201104, end: 20201201
  3. TAFINLAR [Suspect]
     Active Substance: DABRAFENIB MESYLATE
     Indication: METASTATIC MALIGNANT MELANOMA
     Dosage: UNK
     Route: 065

REACTIONS (2)
  - Winged scapula [Not Recovered/Not Resolved]
  - Long thoracic nerve palsy [Not Recovered/Not Resolved]

NARRATIVE: CASE EVENT DATE: 202011
